FAERS Safety Report 11166190 (Version 1)
Quarter: 2015Q2

REPORT INFORMATION
  Report Type: Spontaneous
  Country: US (occurrence: US)
  Receive Date: 20150605
  Receipt Date: 20150605
  Transmission Date: 20150821
  Serious: No
  Sender: FDA-Public Use
  Company Number: US-MALLINCKRODT-T201402881

PATIENT
  Age: 74 Year
  Sex: Female

DRUGS (1)
  1. OCTREOSCAN [Suspect]
     Active Substance: INDIUM IN-111 CHLORIDE\INDIUM IN-111 PENTETREOTIDE\PENTETREOTIDE
     Indication: SCAN
     Dosage: 6 MCI, SINGLE
     Route: 042
     Dates: start: 20140715, end: 20140715

REACTIONS (4)
  - Injection site pain [Recovering/Resolving]
  - Dizziness [Recovered/Resolved]
  - Injection site extravasation [Recovering/Resolving]
  - Pallor [Recovered/Resolved]

NARRATIVE: CASE EVENT DATE: 20140715
